FAERS Safety Report 15627152 (Version 4)
Quarter: 2022Q3

REPORT INFORMATION
  Report Type: Spontaneous
  Country: FR (occurrence: FR)
  Receive Date: 20181116
  Receipt Date: 20220714
  Transmission Date: 20221026
  Serious: Yes (Hospitalization, Other)
  Sender: FDA-Public Use
  Company Number: FR-EMA-DD-20181116-AGRAHARI_P-135450

PATIENT

DRUGS (7)
  1. PROPRANOLOL [Interacting]
     Active Substance: PROPRANOLOL HYDROCHLORIDE
     Indication: Product used for unknown indication
     Dosage: 80 MG, SINGLE
     Route: 048
  2. RIVAROXABAN [Interacting]
     Active Substance: RIVAROXABAN
     Indication: Anticoagulant therapy
     Dosage: 420 MG, SINGLE
     Route: 048
  3. RIVAROXABAN [Interacting]
     Active Substance: RIVAROXABAN
     Indication: Intentional overdose
  4. RIVAROXABAN [Interacting]
     Active Substance: RIVAROXABAN
     Indication: Suicide attempt
  5. ACETAMINOPHEN [Suspect]
     Active Substance: ACETAMINOPHEN
     Indication: Intentional overdose
     Dosage: 16 G, SINGLE
     Route: 048
  6. VALPROMIDE [Interacting]
     Active Substance: VALPROMIDE
     Indication: Intentional overdose
     Dosage: 9 G, SINGLE
     Route: 048
  7. ACETAMINOPHEN [Interacting]
     Active Substance: ACETAMINOPHEN
     Indication: Product used for unknown indication
     Dosage: UNK
     Route: 048

REACTIONS (8)
  - Bradycardia [Unknown]
  - Toxicity to various agents [Unknown]
  - Drug interaction [Unknown]
  - Suicide attempt [Unknown]
  - Poisoning deliberate [Unknown]
  - Intentional product misuse [Unknown]
  - Product use issue [Unknown]
  - Off label use [Unknown]
